FAERS Safety Report 7374012-2 (Version None)
Quarter: 2011Q1

REPORT INFORMATION
  Report Type: 
  Country: None (occurrence: None)
  Receive Date: 20110325
  Receipt Date: 20110311
  Transmission Date: 20110831
  Serious: Yes (Hospitalization)
  Sender: FDA-Public Use
  Company Number: US-CELGENEUS-163-21880-11011945

PATIENT
  Sex: Male

DRUGS (12)
  1. FUROSEMIDE [Concomitant]
     Dosage: 40 MILLIGRAM
     Route: 048
  2. SIMVASTATIN [Concomitant]
     Dosage: 40 MILLIGRAM
     Route: 048
  3. REVLIMID [Suspect]
     Indication: MULTIPLE MYELOMA
     Dosage: 5 MILLIGRAM
     Route: 048
     Dates: start: 20101123, end: 20110105
  4. PROTONIX [Concomitant]
     Dosage: 40 MILLIGRAM
     Route: 048
  5. FUROSEMIDE [Concomitant]
     Indication: HYPERTENSION
  6. ANTIBIOTICS [Concomitant]
     Route: 051
  7. FLUID [Concomitant]
     Route: 051
  8. K-DUR [Concomitant]
     Dosage: 10 MILLIGRAM
     Route: 048
  9. ANTIBIOTICS [Concomitant]
     Indication: PNEUMONIA
     Route: 048
  10. REVLIMID [Suspect]
     Dosage: 2.5 MILLIGRAM
     Route: 048
     Dates: start: 20110105, end: 20110125
  11. METOPROLOL [Concomitant]
     Indication: HYPERTENSION
     Dosage: 25 MILLIGRAM
     Route: 048
  12. GABAPENTIN [Concomitant]
     Indication: NEUROPATHY PERIPHERAL
     Dosage: 300 MILLIGRAM
     Route: 048

REACTIONS (6)
  - PNEUMONIA [None]
  - HYPOTENSION [None]
  - ASTHENIA [None]
  - PULMONARY EMBOLISM [None]
  - DELIRIUM [None]
  - BACTERAEMIA [None]
